FAERS Safety Report 7311818-X (Version None)
Quarter: 2011Q1

REPORT INFORMATION
  Report Type: 
  Country: None (occurrence: None)
  Receive Date: 20110224
  Receipt Date: 20110217
  Transmission Date: 20110831
  Serious: Yes (Other)
  Sender: FDA-Public Use
  Company Number: US-BRISTOL-MYERS SQUIBB COMPANY-15557309

PATIENT
  Sex: Female

DRUGS (1)
  1. ORENCIA [Suspect]
     Dosage: 1ST INFUSION.

REACTIONS (5)
  - PAIN [None]
  - OEDEMA PERIPHERAL [None]
  - CARDIAC FAILURE [None]
  - ERYTHEMA [None]
  - FIBROMYALGIA [None]
